FAERS Safety Report 24039471 (Version 2)
Quarter: 2024Q3

REPORT INFORMATION
  Report Type: Spontaneous
  Country: FR (occurrence: FR)
  Receive Date: 20240702
  Receipt Date: 20240712
  Transmission Date: 20241017
  Serious: Yes (Other)
  Sender: JOHNSON AND JOHNSON
  Company Number: FR-ViiV Healthcare Limited-82096

PATIENT
  Age: 39 Year
  Sex: Female

DRUGS (9)
  1. RILPIVIRINE [Suspect]
     Active Substance: RILPIVIRINE
     Indication: HIV infection
     Dosage: UNK UNK, MO, 900 MG
     Route: 030
     Dates: start: 20230412
  2. RILPIVIRINE [Suspect]
     Active Substance: RILPIVIRINE
     Dosage: UNK UNK, Q8W, 900 MG
     Route: 030
     Dates: start: 20240222
  3. VOCABRIA [Suspect]
     Active Substance: CABOTEGRAVIR SODIUM
     Indication: HIV infection
     Dosage: UNK, Q8W, 600 MG INJECTION
     Route: 030
     Dates: start: 20230412
  4. VOCABRIA [Suspect]
     Active Substance: CABOTEGRAVIR SODIUM
     Dosage: UNK UNK, Q8W, 600 MG INJECTION
     Route: 030
     Dates: start: 20240222
  5. OMEPRAZOLE [Suspect]
     Active Substance: OMEPRAZOLE
     Indication: Product used for unknown indication
     Dosage: 1 DF, QD
     Route: 048
     Dates: start: 20231220, end: 20240220
  6. CABOTEGRAVIR [Concomitant]
     Active Substance: CABOTEGRAVIR
     Indication: HIV infection
     Dosage: UNK
     Route: 048
     Dates: start: 20230301
  7. RILPIVIRINE [Concomitant]
     Active Substance: RILPIVIRINE
     Indication: HIV infection
     Dosage: UNK
     Route: 048
     Dates: start: 20230301, end: 20230412
  8. VOCABRIA [Concomitant]
     Active Substance: CABOTEGRAVIR SODIUM
     Indication: HIV infection
     Route: 048
     Dates: start: 20230301
  9. BIKTARVY [Concomitant]
     Active Substance: BICTEGRAVIR SODIUM\EMTRICITABINE\TENOFOVIR ALAFENAMIDE FUMARATE
     Indication: Antiviral treatment
     Dates: start: 20180620, end: 20230301

REACTIONS (10)
  - Pathogen resistance [Recovered/Resolved with Sequelae]
  - Product administration error [Unknown]
  - Incorrect dose administered [Unknown]
  - Virologic failure [Recovered/Resolved with Sequelae]
  - Viral mutation identified [Unknown]
  - Viral load increased [Unknown]
  - Drug level decreased [Unknown]
  - Injection site pain [Not Recovered/Not Resolved]
  - Thyroid cyst [Unknown]
  - Weight increased [Unknown]

NARRATIVE: CASE EVENT DATE: 20230510
